FAERS Safety Report 14924844 (Version 1)
Quarter: 2018Q2

REPORT INFORMATION
  Report Type: Spontaneous
  Country: US (occurrence: US)
  Receive Date: 20180522
  Receipt Date: 20180522
  Transmission Date: 20180711
  Serious: No
  Sender: FDA-Public Use
  Company Number: US-MEDIMETRIKS-2018-US-001349

PATIENT
  Age: 86 Year
  Sex: Female
  Weight: 49.9 kg

DRUGS (4)
  1. LOW-DOSE ASPIRIN [Concomitant]
     Active Substance: ASPIRIN
  2. FLUOCINOLONE ACETONIDE TOPICAL [Suspect]
     Active Substance: FLUOCINOLONE ACETONIDE
     Indication: PRURITUS
     Dosage: ONCE A NIGHT ON THE SCALP
     Route: 061
     Dates: start: 20180122, end: 20180125
  3. PROPRANOLOL [Concomitant]
     Active Substance: PROPRANOLOL HYDROCHLORIDE
  4. MULTIVITAMIN [Concomitant]
     Active Substance: VITAMINS

REACTIONS (2)
  - Drug ineffective [Unknown]
  - Sensory disturbance [Recovered/Resolved]

NARRATIVE: CASE EVENT DATE: 20180122
